FAERS Safety Report 8715268 (Version 2)
Quarter: 2014Q1

REPORT INFORMATION
  Report Type: Report from Study
  Country: US (occurrence: US)
  Receive Date: 20120809
  Receipt Date: 20140214
  Transmission Date: 20141002
  Serious: Yes (Hospitalization, Other)
  Sender: FDA-Public Use
  Company Number: US-ALEXION-A201201324

PATIENT
  Age: 61 Year
  Sex: Male

DRUGS (1)
  1. SOLIRIS [Suspect]
     Indication: HAEMOLYTIC URAEMIC SYNDROME
     Dosage: 1200 MG, Q2W
     Route: 042
     Dates: start: 201202, end: 20120514

REACTIONS (9)
  - Biliary neoplasm [Not Recovered/Not Resolved]
  - Jaundice [Not Recovered/Not Resolved]
  - Hepatic failure [Unknown]
  - Bile duct cancer [Unknown]
  - Bile duct obstruction [Unknown]
  - Pancreatic carcinoma [Unknown]
  - Drug ineffective [Unknown]
  - Liver function test abnormal [Not Recovered/Not Resolved]
  - Blood bilirubin increased [Not Recovered/Not Resolved]
